FAERS Safety Report 5024505-8 (Version None)
Quarter: 2006Q2

REPORT INFORMATION
  Report Type: 
  Country: None (occurrence: None)
  Receive Date: 20060613
  Receipt Date: 20060529
  Transmission Date: 20061013
  Serious: Yes (Hospitalization)
  Sender: FDA-Public Use
  Company Number: FR-JNJFOC-20060506001

PATIENT
  Age: 63 Year
  Sex: Male

DRUGS (4)
  1. OFLOCET [Suspect]
     Indication: STAPHYLOCOCCAL INFECTION
     Route: 048
     Dates: start: 20060116, end: 20060226
  2. FRACTAL [Suspect]
     Indication: ANGIOPATHY
     Route: 048
     Dates: start: 20050701, end: 20060227
  3. FUCIDINE CAP [Concomitant]
     Route: 048
     Dates: start: 20060116, end: 20060226
  4. TAHOR [Concomitant]
     Indication: PROPHYLAXIS
     Route: 048
     Dates: start: 20010101, end: 20050501

REACTIONS (3)
  - ASTHENIA [None]
  - RENAL TUBULAR NECROSIS [None]
  - RHABDOMYOLYSIS [None]
